FAERS Safety Report 13976063 (Version 2)
Quarter: 2017Q4

REPORT INFORMATION
  Report Type: Spontaneous
  Country: US (occurrence: US)
  Receive Date: 20170915
  Receipt Date: 20171009
  Transmission Date: 20180321
  Serious: Yes (Hospitalization, Other)
  Sender: FDA-Public Use
  Company Number: US-SA-2017SA166190

PATIENT
  Age: 55 Year
  Sex: Female

DRUGS (11)
  1. SOLOSTAR [Suspect]
     Active Substance: DEVICE
     Dates: start: 20170902, end: 20170902
  2. LEVEMIR [Concomitant]
     Active Substance: INSULIN DETEMIR
     Dosage: DOSE:70 UNIT(S)
  3. HUMALOG [Concomitant]
     Active Substance: INSULIN LISPRO
  4. LANTUS [Concomitant]
     Active Substance: INSULIN GLARGINE
  5. CLARITIN [Concomitant]
     Active Substance: LORATADINE
  6. VICTOZA [Concomitant]
     Active Substance: LIRAGLUTIDE
  7. INVOKANA [Concomitant]
     Active Substance: CANAGLIFLOZIN
  8. NOVOLOG [Concomitant]
     Active Substance: INSULIN ASPART
  9. METOPROLOL. [Concomitant]
     Active Substance: METOPROLOL
     Indication: BLOOD PRESSURE MEASUREMENT
  10. APIDRA [Suspect]
     Active Substance: INSULIN GLULISINE
     Indication: TYPE 1 DIABETES MELLITUS
     Dosage: DOSE:5 UNIT(S)
     Route: 058
     Dates: start: 20170902, end: 20170902
  11. CONTRAVE [Concomitant]
     Active Substance: BUPROPION HYDROCHLORIDE\NALTREXONE HYDROCHLORIDE

REACTIONS (4)
  - Peripheral swelling [Recovered/Resolved]
  - Pulmonary congestion [Recovered/Resolved]
  - Dyspnoea [Recovered/Resolved]
  - Anaphylactic reaction [Unknown]

NARRATIVE: CASE EVENT DATE: 20170902
